FAERS Safety Report 17500641 (Version 1)
Quarter: 2020Q1

REPORT INFORMATION
  Report Type: Spontaneous
  Country: FR (occurrence: FR)
  Receive Date: 20200305
  Receipt Date: 20200305
  Transmission Date: 20200409
  Serious: Yes (Hospitalization)
  Sender: FDA-Public Use
  Company Number: FR-TEVA-2020-FR-1194564

PATIENT
  Age: 62 Year
  Sex: Male
  Weight: 102 kg

DRUGS (9)
  1. OMEPRAZOLE. [Concomitant]
     Active Substance: OMEPRAZOLE
  2. AMOXICILLINE [Suspect]
     Active Substance: AMOXICILLIN
     Indication: HELICOBACTER GASTRITIS
     Route: 048
     Dates: start: 20200127, end: 20200203
  3. FLAGYL [Suspect]
     Active Substance: METRONIDAZOLE\METRONIDAZOLE HYDROCHLORIDE
     Indication: HELICOBACTER GASTRITIS
     Route: 048
     Dates: start: 20200127, end: 20200203
  4. METFORMINE ALTER [Concomitant]
  5. TOUJEO [Concomitant]
     Active Substance: INSULIN GLARGINE
  6. ATORVASTATINE [Concomitant]
     Active Substance: ATORVASTATIN
  7. CLARITHROMYCINE [Suspect]
     Active Substance: CLARITHROMYCIN
     Indication: HELICOBACTER GASTRITIS
     Route: 048
     Dates: start: 20200127, end: 20200203
  8. HUMALOG [Concomitant]
     Active Substance: INSULIN LISPRO
  9. PYLERA [Suspect]
     Active Substance: BISMUTH SUBCITRATE POTASSIUM\METRONIDAZOLE\TETRACYCLINE HYDROCHLORIDE
     Indication: HELICOBACTER GASTRITIS
     Route: 048
     Dates: start: 20200203, end: 20200206

REACTIONS (2)
  - Rash maculo-papular [Recovering/Resolving]
  - Pancreatitis acute [Recovering/Resolving]

NARRATIVE: CASE EVENT DATE: 20200131
